FAERS Safety Report 24556763 (Version 1)
Quarter: 2024Q4

REPORT INFORMATION
  Report Type: Report from Study
  Country: CN (occurrence: CN)
  Receive Date: 20241028
  Receipt Date: 20241028
  Transmission Date: 20250115
  Serious: Yes (Death, Life-Threatening, Hospitalization, Disabling, Congenital Anomaly, Other)
  Sender: JOHNSON AND JOHNSON
  Company Number: CN-JNJFOC-20241046021

PATIENT

DRUGS (3)
  1. BOSENTAN [Suspect]
     Active Substance: BOSENTAN
     Indication: Pulmonary arterial hypertension
     Route: 048
  2. BOSENTAN [Suspect]
     Active Substance: BOSENTAN
     Route: 048
  3. MACITENTAN [Suspect]
     Active Substance: MACITENTAN
     Indication: Pulmonary arterial hypertension
     Route: 048

REACTIONS (24)
  - Pneumonia aspiration [Fatal]
  - Pneumonia viral [Fatal]
  - Pneumonia bacterial [Fatal]
  - COVID-19 pneumonia [Fatal]
  - Atypical pneumonia [Fatal]
  - Pneumonia staphylococcal [Fatal]
  - Pneumonia pseudomonal [Fatal]
  - Pneumonia [Fatal]
  - Pneumonia klebsiella [Fatal]
  - Pneumonia influenzal [Unknown]
  - Pneumonia respiratory syncytial viral [Unknown]
  - Pneumonia escherichia [Unknown]
  - Pneumonia pneumococcal [Unknown]
  - Cardiac failure [Unknown]
  - Deafness [Unknown]
  - Hepatic function abnormal [Unknown]
  - Rash [Unknown]
  - Fluid retention [Unknown]
  - Fatigue [Unknown]
  - Abdominal pain [Unknown]
  - Constipation [Unknown]
  - Anaemia [Unknown]
  - Off label use [Unknown]
  - Off label use [Unknown]
